FAERS Safety Report 8258568 (Version 7)
Quarter: 2013Q4

REPORT INFORMATION
  Report Type: Report from Study
  Country: US (occurrence: US)
  Receive Date: 20111122
  Receipt Date: 20131226
  Transmission Date: 20140711
  Serious: Yes (Hospitalization)
  Sender: FDA-Public Use
  Company Number: PHEH2011US009233

PATIENT
  Age: 60 Year
  Sex: Female

DRUGS (9)
  1. TASIGNA (AMN107) CAPSULE [Suspect]
     Indication: CHRONIC MYELOID LEUKAEMIA
     Route: 048
     Dates: start: 201103, end: 201209
  2. COZAAR [Concomitant]
     Indication: HYPERTENSION
     Dosage: 100 MG
  3. PREVACID [Concomitant]
     Indication: GASTROOESOPHAGEAL REFLUX DISEASE
     Dosage: 30 MG
  4. METFORMIN [Concomitant]
     Indication: DIABETES MELLITUS
     Dosage: 1000 MG
  5. VITAMIN D(ERGOCALCIFEROL) [Concomitant]
     Dosage: 1000 U
  6. ASPIRIN (ACETYLSALICYLIC ACID) [Concomitant]
     Dosage: 81 MG
  7. CALCIUM [Concomitant]
     Dosage: 500 MG
  8. DILTIAZEM [Concomitant]
     Indication: HYPERTENSION
     Dosage: 30 MG
  9. GLYBURIDE (GLIBENCLAMIDE) [Concomitant]
     Indication: DIABETES MELLITUS
     Dosage: 20 MG

REACTIONS (5)
  - Pancreatitis acute [Recovered/Resolved]
  - Vomiting [Recovered/Resolved]
  - Abdominal pain upper [Recovered/Resolved]
  - Nausea [Recovered/Resolved]
  - Diarrhoea [Not Recovered/Not Resolved]
